FAERS Safety Report 5888687-8 (Version None)
Quarter: 2008Q3

REPORT INFORMATION
  Report Type: 
  Country: None (occurrence: None)
  Receive Date: 20080917
  Receipt Date: 20080904
  Transmission Date: 20090109
  Serious: Yes (Other)
  Sender: FDA-Public Use
  Company Number: THQ2008A01831

PATIENT
  Age: 64 Year
  Sex: Male

DRUGS (2)
  1. PIOGLITAZONE HCL [Suspect]
     Indication: TYPE 2 DIABETES MELLITUS
     Dosage: 30 MG (30 MG, 1 IN 1 D) PER ORAL
     Route: 048
     Dates: start: 20060307, end: 20060605
  2. HYDROCHLOROTHIAZIDE [Concomitant]

REACTIONS (3)
  - BUNDLE BRANCH BLOCK LEFT [None]
  - DISEASE PROGRESSION [None]
  - MYOCARDIAL INFARCTION [None]
